FAERS Safety Report 10210406 (Version 3)
Quarter: 2014Q2

REPORT INFORMATION
  Report Type: Spontaneous
  Country: GB (occurrence: None)
  Receive Date: 20140528
  Receipt Date: 20140620
  Transmission Date: 20141212
  Serious: Yes (Hospitalization)
  Sender: FDA-Public Use
  Company Number: 2325552

PATIENT
  Age: 62 Year
  Sex: Female
  Weight: 56.4 kg

DRUGS (19)
  1. VINCRISTINE SULFATE [Suspect]
     Indication: DIFFUSE LARGE B-CELL LYMPHOMA
     Dates: start: 20140210, end: 20140321
  2. DOXORUBICIN HYDROCHLORIDE [Suspect]
     Indication: DIFFUSE LARGE B-CELL LYMPHOMA
     Dates: start: 20140210, end: 20140321
  3. DOMPERIDONE [Suspect]
     Indication: ANTIEMETIC SUPPORTIVE CARE
     Route: 048
     Dates: start: 20140210
  4. PREDNISOLONE [Suspect]
     Indication: DIFFUSE LARGE B-CELL LYMPHOMA
     Dates: start: 20140210, end: 20140325
  5. RITUXIMAB [Suspect]
     Indication: PRODUCT USED FOR UNKNOWN INDICATION
     Dates: start: 20140210, end: 20140321
  6. CYCLOPHOSPHAMIDE [Suspect]
     Indication: DIFFUSE LARGE B-CELL LYMPHOMA
     Dates: start: 20140210, end: 20140321
  7. BORTEZOMIB [Suspect]
     Indication: DIFFUSE LARGE B-CELL LYMPHOMA
     Dates: start: 20140228, end: 20140328
  8. CO-TRIMOXAZOLE [Concomitant]
  9. ACYCLOVIR [Concomitant]
  10. FLUCONAZOLE [Concomitant]
  11. GLYCERIN [Concomitant]
  12. HALOPERIDOL [Concomitant]
  13. METOCLOPRAMIDE [Concomitant]
  14. MACROGOL W/POTASSIUM CHLORIDE/SODIUM BICARBON [Concomitant]
  15. OMEPRAZOLE [Concomitant]
  16. DOCUSATE SODIUM [Concomitant]
  17. ALLOPURINOL [Concomitant]
  18. BENZYDAMINE HYDROCHLORIDE [Concomitant]
  19. PARACETAMOL [Concomitant]

REACTIONS (11)
  - Intestinal dilatation [None]
  - Constipation [None]
  - Nausea [None]
  - Vomiting [None]
  - Diarrhoea [None]
  - Febrile neutropenia [None]
  - Duodenal stenosis [None]
  - Pyrexia [None]
  - Abdominal pain [None]
  - Malaise [None]
  - Mucosal inflammation [None]
